FAERS Safety Report 15834572 (Version 3)
Quarter: 2019Q1

REPORT INFORMATION
  Report Type: Report from Study
  Country: US (occurrence: US)
  Receive Date: 20190116
  Receipt Date: 20190206
  Transmission Date: 20190417
  Serious: Yes (Death, Hospitalization)
  Sender: FDA-Public Use
  Company Number: US-ACTELION-A-US2018-173816

PATIENT
  Age: 60 Year
  Sex: Female
  Weight: 56.69 kg

DRUGS (3)
  1. ADCIRCA [Concomitant]
     Active Substance: TADALAFIL
  2. VELETRI [Suspect]
     Active Substance: EPOPROSTENOL
     Dosage: 22.6 NG/KG, PER MIN
     Route: 042
  3. VELETRI [Suspect]
     Active Substance: EPOPROSTENOL
     Indication: PULMONARY ARTERIAL HYPERTENSION
     Dosage: 21.2 NG/KG, PER MIN
     Route: 042

REACTIONS (16)
  - Back pain [Unknown]
  - Musculoskeletal pain [Unknown]
  - Cough [Unknown]
  - Lower respiratory tract infection [Unknown]
  - Upper limb fracture [Unknown]
  - Pain in extremity [Unknown]
  - Panic attack [Unknown]
  - Dyspnoea [Unknown]
  - Limb injury [Unknown]
  - Neck pain [Unknown]
  - Death [Fatal]
  - Lung transplant [Unknown]
  - Acute respiratory failure [Unknown]
  - Pulmonary embolism [Unknown]
  - Sinusitis [Unknown]
  - Unevaluable event [Unknown]

NARRATIVE: CASE EVENT DATE: 20180606
